FAERS Safety Report 5625954-7 (Version None)
Quarter: 2008Q1

REPORT INFORMATION
  Report Type: 
  Country: None (occurrence: None)
  Receive Date: 20080214
  Receipt Date: 20080213
  Transmission Date: 20080703
  Serious: Yes (Hospitalization)
  Sender: FDA-Public Use
  Company Number: A0709200A

PATIENT
  Age: 56 Year
  Sex: Female

DRUGS (11)
  1. ALLI [Suspect]
     Dates: start: 20070801, end: 20080101
  2. ESTROPIPATE [Concomitant]
  3. TOPROL-XL [Concomitant]
  4. PROVENTIL GENTLEHALER [Concomitant]
     Dosage: 2PUFF PER DAY
     Route: 055
  5. ALBUTEROL [Concomitant]
     Dosage: 2PUFF AS REQUIRED
  6. MULTI-VITAMIN [Concomitant]
  7. VITAMIN B COMPLEX CAP [Concomitant]
  8. ASCORBIC ACID [Concomitant]
  9. VITAMIN D [Concomitant]
  10. CALCIUM [Concomitant]
  11. GLUCOSAMINE [Concomitant]

REACTIONS (4)
  - FATIGUE [None]
  - JOINT INJURY [None]
  - JOINT SWELLING [None]
  - RESPIRATORY DISTRESS [None]
